FAERS Safety Report 7351311-1 (Version None)
Quarter: 2011Q1

REPORT INFORMATION
  Report Type: 
  Country: None (occurrence: None)
  Receive Date: 20110314
  Receipt Date: 20110228
  Transmission Date: 20110831
  Serious: Yes (Other)
  Sender: FDA-Public Use
  Company Number: PHHY2011ZA13018

PATIENT
  Sex: Female

DRUGS (2)
  1. GLEEVEC [Suspect]
     Indication: CHROMOSOME ANALYSIS ABNORMAL
  2. GLEEVEC [Suspect]
     Indication: CHRONIC MYELOID LEUKAEMIA
     Dosage: 400- 800 MG, QD
     Route: 048
     Dates: start: 20061101, end: 20110201

REACTIONS (6)
  - NAUSEA [None]
  - VOMITING [None]
  - OEDEMA [None]
  - DRUG INTOLERANCE [None]
  - FULL BLOOD COUNT INCREASED [None]
  - VITILIGO [None]
